FAERS Safety Report 4818900-7 (Version None)
Quarter: 2005Q4

REPORT INFORMATION
  Report Type: 
  Country: None (occurrence: None)
  Receive Date: 20051101
  Receipt Date: 20051024
  Transmission Date: 20060501
  Serious: Yes (Death)
  Sender: FDA-Public Use
  Company Number: J081-002-002094

PATIENT
  Age: 81 Year
  Sex: Female

DRUGS (2)
  1. ARICEPT [Suspect]
     Dosage: 3 MG, 1 IN 1 D, ORAL
     Route: 048
  2. UNSPECIFIED DRUG [Concomitant]

REACTIONS (2)
  - CONSTIPATION [None]
  - SUDDEN DEATH [None]
